FAERS Safety Report 9656089 (Version 2)
Quarter: 2013Q4

REPORT INFORMATION
  Report Type: Spontaneous
  Country: US (occurrence: US)
  Receive Date: 20131030
  Receipt Date: 20131030
  Transmission Date: 20140711
  Serious: Yes (Other)
  Sender: FDA-Public Use
  Company Number: PHEH2013US019292

PATIENT
  Sex: Male

DRUGS (4)
  1. EXELON PATCH [Suspect]
     Dosage: 9.5 MG, QD
     Route: 062
  2. EXELON PATCH [Suspect]
     Dosage: 13.3 MG, UNK
     Route: 062
  3. NAMENDA [Concomitant]
     Dosage: UNK UKN, UNK
  4. ANDRODERM [Concomitant]
     Dosage: UNK UKN, UNK

REACTIONS (2)
  - Dementia [Not Recovered/Not Resolved]
  - Amnesia [Not Recovered/Not Resolved]
